FAERS Safety Report 6839129-7 (Version None)
Quarter: 2010Q3

REPORT INFORMATION
  Report Type: 
  Country: None (occurrence: None)
  Receive Date: 20100714
  Receipt Date: 20100626
  Transmission Date: 20110219
  Serious: Yes (Hospitalization)
  Sender: FDA-Public Use
  Company Number: US-SHIRE-SPV1-2010-01174

PATIENT

DRUGS (2)
  1. CARBATROL [Suspect]
     Indication: CONVULSION
     Dosage: THREE 200MG TABS IN AM AND THREE 200MG TABS IN PM
     Route: 048
  2. LORAZEPAM [Concomitant]
     Indication: CONVULSION
     Dosage: 2MG TID, AS REQ'D
     Route: 048

REACTIONS (2)
  - ANIMAL BITE [None]
  - INFECTION [None]
